FAERS Safety Report 5905145-2 (Version None)
Quarter: 2008Q3

REPORT INFORMATION
  Report Type: 
  Country: None (occurrence: None)
  Receive Date: 20080909
  Receipt Date: 20071106
  Transmission Date: 20090109
  Serious: Yes (Hospitalization)
  Sender: FDA-Public Use
  Company Number: 163-20785-07110425

PATIENT
  Age: 74 Year
  Sex: Female

DRUGS (2)
  1. THALOMID [Suspect]
     Indication: MULTIPLE MYELOMA
     Dosage: 50 - 100MG, DAILY, ORAL ; ORAL
     Route: 048
     Dates: start: 20051115, end: 20060601
  2. THALOMID [Suspect]
     Indication: MULTIPLE MYELOMA
     Dosage: 50 - 100MG, DAILY, ORAL ; ORAL
     Route: 048
     Dates: start: 20061201, end: 20070801

REACTIONS (3)
  - ASTHENIA [None]
  - NAUSEA [None]
  - VOMITING [None]
